FAERS Safety Report 18412738 (Version 8)
Quarter: 2021Q3

REPORT INFORMATION
  Report Type: Report from Study
  Country: CO (occurrence: CO)
  Receive Date: 20201021
  Receipt Date: 20210909
  Transmission Date: 20211014
  Serious: Yes (Hospitalization, Other)
  Sender: FDA-Public Use
  Company Number: NVSC2020CO280532

PATIENT
  Age: 12 Year
  Sex: Male
  Weight: 22 kg

DRUGS (7)
  1. REVOLADE [Suspect]
     Active Substance: ELTROMBOPAG OLAMINE
     Dosage: 0.5 DF, QD (HALF TABLET DAILY)
     Route: 065
  2. ADIMOD [Concomitant]
     Indication: COMBINED IMMUNODEFICIENCY
     Dosage: QD (400 MG/7 ML)
     Route: 048
  3. SULFAMETHOXAZOLE AND TRIMETHOPRIM [Concomitant]
     Active Substance: SULFAMETHOXAZOLE\TRIMETHOPRIM
     Indication: PROPHYLAXIS
     Dosage: (MONDAY, WEDNESDAY AND FRIDAY)
     Route: 048
  4. URSACOL [Concomitant]
     Active Substance: URSODIOL
     Indication: CHOLANGITIS SCLEROSING
     Dosage: 300 MG, Q12H
     Route: 048
  5. REVOLADE [Suspect]
     Active Substance: ELTROMBOPAG OLAMINE
     Dosage: 12.5 MG, QD (SPLIT TABLET OF 25 MG)
     Route: 048
     Dates: start: 20210714
  6. PANCREATIN [Concomitant]
     Active Substance: PANCRELIPASE
     Indication: DIARRHOEA
     Dosage: Q8H
     Route: 048
  7. REVOLADE [Suspect]
     Active Substance: ELTROMBOPAG OLAMINE
     Indication: IMMUNE THROMBOCYTOPENIA
     Dosage: 25 MG, QD
     Route: 048
     Dates: start: 20201009

REACTIONS (18)
  - Platelet count increased [Unknown]
  - Headache [Unknown]
  - Haemoglobin increased [Unknown]
  - Liver disorder [Unknown]
  - Dizziness [Unknown]
  - Scratch [Unknown]
  - Pruritus [Unknown]
  - Vomiting [Unknown]
  - Hepatotoxicity [Unknown]
  - Hepatic enzyme increased [Unknown]
  - Incorrect dose administered [Unknown]
  - Colitis [Unknown]
  - Hypersensitivity [Unknown]
  - Transaminases increased [Unknown]
  - Wrong technique in product usage process [Unknown]
  - Back pain [Unknown]
  - Nausea [Unknown]
  - Malaise [Unknown]

NARRATIVE: CASE EVENT DATE: 20201023
